FAERS Safety Report 15948636 (Version 1)
Quarter: 2019Q1

REPORT INFORMATION
  Report Type: Spontaneous
  Country: FR (occurrence: FR)
  Receive Date: 20190212
  Receipt Date: 20190212
  Transmission Date: 20190417
  Serious: Yes (Other)
  Sender: FDA-Public Use
  Company Number: FR-AXELLIA-001272

PATIENT
  Age: 70 Year
  Sex: Male

DRUGS (4)
  1. VORICONAZOLE. [Suspect]
     Active Substance: VORICONAZOLE
     Indication: SCEDOSPORIUM INFECTION
     Dosage: 200 MG BID AFTER A LOADING DOSE OF 400 MG BID
  2. CEFTRIAXONE. [Concomitant]
     Active Substance: CEFTRIAXONE
     Indication: STAPHYLOCOCCAL INFECTION
     Dosage: 3 G, DAILY
  3. MILTEFOSINE [Suspect]
     Active Substance: MILTEFOSINE
     Indication: SCEDOSPORIUM INFECTION
     Dosage: 50 MG, 3X/DAY TID
  4. TERBINAFINE/TERBINAFINE HYDROCHLORIDE [Suspect]
     Active Substance: TERBINAFINE HYDROCHLORIDE
     Indication: SCEDOSPORIUM INFECTION
     Dosage: 500 MG TWICE PER DAY

REACTIONS (9)
  - Photosensitivity reaction [Recovered/Resolved]
  - Nausea [Recovered/Resolved]
  - Therapy non-responder [None]
  - Asthenia [Recovered/Resolved]
  - Squamous cell carcinoma of skin [Unknown]
  - Product use issue [Unknown]
  - Visual impairment [Recovered/Resolved]
  - Drug level decreased [Unknown]
  - Disease recurrence [Recovered/Resolved]
